FAERS Safety Report 8997090 (Version 1)
Quarter: 2013Q1

REPORT INFORMATION
  Report Type: Spontaneous
  Country: US (occurrence: None)
  Receive Date: 20130102
  Receipt Date: 20130102
  Transmission Date: 20140127
  Serious: Yes (Other)
  Sender: FDA-Public Use
  Company Number: None

PATIENT
  Age: 64 Year
  Sex: Female
  Weight: 61.24 kg

DRUGS (1)
  1. RANITIDINE [Suspect]
     Dosage: 1  DAILY  PO
     Route: 048
     Dates: start: 20121101, end: 20121215

REACTIONS (4)
  - Abdominal pain upper [None]
  - Abdominal distension [None]
  - Peak expiratory flow rate decreased [None]
  - Product substitution issue [None]
